FAERS Safety Report 8433905-5 (Version None)
Quarter: 2012Q2

REPORT INFORMATION
  Report Type: 
  Country: None (occurrence: None)
  Receive Date: 20120323
  Receipt Date: 20110729
  Transmission Date: 20120825
  Serious: Yes (Other)
  Sender: FDA-Public Use
  Company Number: 163-21880-11063006

PATIENT
  Age: 66 Year
  Sex: Female
  Weight: 67.1324 kg

DRUGS (13)
  1. REVLIMID [Suspect]
     Indication: MULTIPLE MYELOMA
     Dosage: 25 MG,  X  14 DAYS, PO, 15 MG, QD X 14D, REST X 7D, PO
     Route: 048
     Dates: start: 20110503, end: 20110516
  2. REVLIMID [Suspect]
     Indication: MULTIPLE MYELOMA
     Dosage: 25 MG,  X  14 DAYS, PO, 15 MG, QD X 14D, REST X 7D, PO
     Route: 048
     Dates: start: 20110422
  3. PEROOCET (OXYCOCET)(UNKNOWN) [Concomitant]
  4. BABY ASPIRIN (ACETYLSALICYLIC ACID)(UNKNOWN [Concomitant]
  5. FERROUS SULFATE TAB [Concomitant]
  6. DEXAMETHASONE [Concomitant]
  7. VELCADE [Concomitant]
  8. METHOTREXATE [Concomitant]
  9. BENICAR (OLMESARTAN MEDOXOMIL)(UNKNOWN) [Concomitant]
  10. FOLIC ACID (FOLIC ACID)(UNKNOWN) [Concomitant]
  11. ATIVAN [Concomitant]
  12. ACYCLOVIR (ACICLOVIR)(UNKNOWN) [Concomitant]
  13. PREVACID [Concomitant]

REACTIONS (1)
  - URTICARIA [None]
